FAERS Safety Report 9448723 (Version 1)
Quarter: 2013Q3

REPORT INFORMATION
  Report Type: Spontaneous
  Country: US (occurrence: US)
  Receive Date: 20130808
  Receipt Date: 20130808
  Transmission Date: 20140515
  Serious: Yes (Hospitalization, Other)
  Sender: FDA-Public Use
  Company Number: US-ASTRAZENECA-2013SE54345

PATIENT
  Age: 66 Year
  Sex: Female

DRUGS (6)
  1. NEXIUM [Suspect]
     Indication: ABDOMINAL DISCOMFORT
     Route: 048
     Dates: start: 2005
  2. METFORMIN [Concomitant]
     Indication: DIABETES MELLITUS
     Route: 048
     Dates: start: 1999
  3. EXEMTANE [Concomitant]
     Indication: BREAST CANCER
     Route: 048
     Dates: start: 2012
  4. ALENDRONATE [Concomitant]
     Indication: OSTEOPOROSIS
     Route: 048
     Dates: start: 2008
  5. BUPROPRION [Concomitant]
     Indication: DEPRESSION
  6. MEDICATION FOR DEPRESSION [Concomitant]
     Indication: DEPRESSION

REACTIONS (6)
  - Breast cancer female [Unknown]
  - Pneumonia [Unknown]
  - Blood pressure increased [Unknown]
  - Abdominal distension [Not Recovered/Not Resolved]
  - Malaise [Not Recovered/Not Resolved]
  - Constipation [Not Recovered/Not Resolved]
